FAERS Safety Report 5808096-7 (Version None)
Quarter: 2008Q3

REPORT INFORMATION
  Report Type: 
  Country: None (occurrence: None)
  Receive Date: 20080711
  Receipt Date: 20080701
  Transmission Date: 20090109
  Serious: Yes (Other)
  Sender: FDA-Public Use
  Company Number: GB-PFIZER INC-2008055104

PATIENT
  Age: 61 Year
  Sex: Male
  Weight: 89 kg

DRUGS (6)
  1. SULFASALAZINE [Suspect]
     Route: 048
     Dates: start: 20010801, end: 20071001
  2. DICLOFENAC [Suspect]
     Route: 048
  3. FOLIC ACID [Suspect]
     Route: 048
     Dates: start: 20061013, end: 20080501
  4. METHOTREXATE [Suspect]
     Dosage: FREQ:15MG WEEKLY
     Dates: start: 20061013, end: 20080501
  5. OMEPRAZOLE [Suspect]
     Route: 048
  6. ETANERCEPT [Suspect]
     Route: 058
     Dates: start: 20070425, end: 20080501

REACTIONS (1)
  - TONSIL CANCER [None]
